FAERS Safety Report 4869375-3 (Version None)
Quarter: 2005Q4

REPORT INFORMATION
  Report Type: 
  Country: None (occurrence: None)
  Receive Date: 20051230
  Receipt Date: 20051006
  Transmission Date: 20060501
  Serious: Yes (Life-Threatening, Hospitalization, Disabling, Other)
  Sender: FDA-Public Use
  Company Number: 2005AP05304

PATIENT
  Age: 26978 Day
  Sex: Female
  Weight: 52 kg

DRUGS (9)
  1. ARIMIDEX [Suspect]
     Indication: BREAST CANCER
     Route: 048
     Dates: start: 20010619, end: 20050929
  2. PLETAL [Suspect]
     Indication: LACUNAR INFARCTION
     Route: 048
     Dates: start: 20050114, end: 20050929
  3. BETRILOL [Concomitant]
     Indication: HYPERTENSION
     Route: 048
     Dates: start: 20000428, end: 20040123
  4. MEDAZEPAM [Concomitant]
     Indication: HYPERTENSION
     Route: 048
     Dates: start: 20000428, end: 20040212
  5. BISPHOSPHONATE [Concomitant]
     Indication: MUSCULAR DYSTROPHY
     Dates: start: 20040212
  6. TOFRANIL [Concomitant]
     Indication: MUSCULAR DYSTROPHY
     Route: 048
     Dates: start: 20040212, end: 20050108
  7. CERCINE [Concomitant]
     Indication: MUSCULAR DYSTROPHY
     Dates: start: 20040415, end: 20050705
  8. ARLANTO [Concomitant]
     Indication: GASTRITIS
     Route: 048
     Dates: start: 20040122, end: 20050929
  9. BONALON [Concomitant]
     Route: 048
     Dates: start: 20040212, end: 20050111

REACTIONS (2)
  - CEREBRAL HAEMORRHAGE [None]
  - FALL [None]
